FAERS Safety Report 10203943 (Version 1)
Quarter: 2014Q2

REPORT INFORMATION
  Report Type: Spontaneous
  Country: US (occurrence: US)
  Receive Date: 20140529
  Receipt Date: 20140529
  Transmission Date: 20141212
  Serious: No
  Sender: FDA-Public Use
  Company Number: US-009507513-1405USA003144

PATIENT
  Sex: Female
  Weight: 61.68 kg

DRUGS (10)
  1. MIRALAX [Suspect]
     Indication: IRRITABLE BOWEL SYNDROME
     Dosage: 17 G, 3-4 TIMES A WEEK
     Route: 048
  2. MIRALAX [Suspect]
     Indication: CONVULSION
  3. MIRALAX [Suspect]
     Indication: ELECTROLYTE IMBALANCE
  4. MIRALAX [Suspect]
     Indication: CONSTIPATION
  5. TRILEPTAL [Concomitant]
     Indication: EPILEPSY
     Dosage: UNK, UNKNOWN
  6. CLORAZEPATE DIPOTASSIUM [Concomitant]
     Indication: EPILEPSY
     Dosage: UNK, UNKNOWN
  7. PHENOBARBITAL [Concomitant]
     Indication: EPILEPSY
     Dosage: UNK, UNKNOWN
  8. FERREX [Concomitant]
     Indication: ANAEMIA
     Dosage: UNK, UNKNOWN
  9. CYANOCOBALAMIN [Concomitant]
     Indication: ELECTROLYTE IMBALANCE
     Dosage: UNK, UNKNOWN
  10. IRON (UNSPECIFIED) [Concomitant]
     Indication: ELECTROLYTE IMBALANCE
     Dosage: UNK, UNKNOWN

REACTIONS (2)
  - Inappropriate schedule of drug administration [Unknown]
  - Drug prescribing error [Unknown]
